FAERS Safety Report 5357919-7 (Version None)
Quarter: 2007Q2

REPORT INFORMATION
  Report Type: 
  Country: None (occurrence: None)
  Receive Date: 20070612
  Receipt Date: 20070529
  Transmission Date: 20071010
  Serious: Yes (Hospitalization, Other)
  Sender: FDA-Public Use
  Company Number: PAR_01597_2007

PATIENT
  Sex: Female
  Weight: 55.4 kg

DRUGS (18)
  1. ISOSORBIDE (PAR) [Suspect]
  2. LISINOPRIL [Suspect]
  3. SU-011, 248 (SUNITINIB MALATE) [Suspect]
     Indication: SQUAMOUS CELL CARCINOMA
     Dosage: (50 MG QD 4 WEEKS ON, 2 WEEKS OFF ORAL)
     Route: 048
     Dates: start: 20070221
  4. DIGITEK [Concomitant]
  5. FOSAMAX [Concomitant]
  6. HYDROCHLOROTHIAZIDE [Concomitant]
  7. HYDROCODONE BITARTRATE [Concomitant]
  8. LEVOTHYROXINE SODIUM [Concomitant]
  9. LIPITOR [Concomitant]
  10. LORAZEPAM [Concomitant]
  11. OMEPRAZOLE [Concomitant]
  12. CORTISONE ACETATE [Concomitant]
  13. GLUCOSAMINE [Concomitant]
  14. VITAMIN CAP [Concomitant]
  15. GLYCEROL 2.6% [Concomitant]
  16. OMEGA 3 [Concomitant]
  17. BIOTENE [Concomitant]
  18. OSCAL /00108001/ [Concomitant]

REACTIONS (1)
  - CHOLECYSTITIS [None]
